FAERS Safety Report 7631669-6 (Version None)
Quarter: 2011Q3

REPORT INFORMATION
  Report Type: 
  Country: None (occurrence: None)
  Receive Date: 20110725
  Receipt Date: 20110214
  Transmission Date: 20111222
  Serious: No
  Sender: FDA-Public Use
  Company Number: US-BRISTOL-MYERS SQUIBB COMPANY-15548761

PATIENT
  Sex: Male

DRUGS (1)
  1. COUMADIN [Suspect]
     Dosage: STARTED 3 MONTH AGO  7.5 MG MWF
     Dates: start: 20100101

REACTIONS (3)
  - ERYTHEMA [None]
  - CHILLS [None]
  - NASOPHARYNGITIS [None]
